FAERS Safety Report 8426311-0 (Version None)
Quarter: 2012Q2

REPORT INFORMATION
  Report Type: 
  Country: None (occurrence: None)
  Receive Date: 20120611
  Receipt Date: 20120530
  Transmission Date: 20120825
  Serious: Yes (Life-Threatening, Hospitalization)
  Sender: FDA-Public Use
  Company Number: US-SANOFI-AVENTIS-2012SA038668

PATIENT
  Age: 65 Year
  Sex: Male

DRUGS (3)
  1. APIDRA [Suspect]
     Dosage: APIDRA DOSING ON SLIDING SCALE WITH MEALS
     Route: 058
     Dates: start: 20110101
  2. GLUCOPHAGE [Suspect]
     Route: 065
  3. LANTUS [Suspect]
     Route: 058
     Dates: start: 20110101, end: 20120301

REACTIONS (3)
  - WEIGHT DECREASED [None]
  - STREPTOCOCCAL SEPSIS [None]
  - BLOOD GLUCOSE INCREASED [None]
